FAERS Safety Report 6212914-0 (Version None)
Quarter: 2009Q2

REPORT INFORMATION
  Report Type: 
  Country: None (occurrence: None)
  Receive Date: 20090603
  Receipt Date: 20090528
  Transmission Date: 20091009
  Serious: Yes (Other)
  Sender: FDA-Public Use
  Company Number: ES-AVENTIS-200912851EU

PATIENT
  Age: 60 Year
  Sex: Female

DRUGS (1)
  1. SEGURIL                            /00032601/ [Suspect]
     Dosage: DOSE: UNK
     Route: 048
     Dates: start: 20070912, end: 20070925

REACTIONS (3)
  - HEPATIC ENCEPHALOPATHY [None]
  - HYPONATRAEMIA [None]
  - RENAL FAILURE [None]
